FAERS Safety Report 5781723-9 (Version None)
Quarter: 2008Q2

REPORT INFORMATION
  Report Type: 
  Country: None (occurrence: None)
  Receive Date: 20080623
  Receipt Date: 20071121
  Transmission Date: 20081010
  Serious: No
  Sender: FDA-Public Use
  Company Number: US-ASTRAZENECA-2007UW26920

PATIENT
  Sex: Male

DRUGS (2)
  1. RHINOCORT [Suspect]
     Dosage: 2 SPRAYS EACH NOSTRIL ONCE
     Route: 045
  2. DIOVAN [Concomitant]

REACTIONS (1)
  - BLOOD PRESSURE SYSTOLIC DECREASED [None]
